FAERS Safety Report 7225381-5 (Version None)
Quarter: 2011Q1

REPORT INFORMATION
  Report Type: 
  Country: None (occurrence: None)
  Receive Date: 20110103
  Receipt Date: 20101216
  Transmission Date: 20110831
  Serious: Yes (Hospitalization)
  Sender: FDA-Public Use
  Company Number: 023912

PATIENT
  Sex: Male

DRUGS (1)
  1. CIMZIA [Suspect]
     Indication: CROHN'S DISEASE
     Dosage: SUBCUTANEOUS
     Route: 058
     Dates: start: 20091001

REACTIONS (6)
  - ABDOMINAL ADHESIONS [None]
  - MALAISE [None]
  - SPLENECTOMY [None]
  - SPLENIC RUPTURE [None]
  - COLECTOMY TOTAL [None]
  - IATROGENIC INJURY [None]
